FAERS Safety Report 9086930 (Version 1)
Quarter: 2013Q1

REPORT INFORMATION
  Report Type: Report from Study
  Country: US (occurrence: US)
  Receive Date: 20130131
  Receipt Date: 20130131
  Transmission Date: 20140127
  Serious: No
  Sender: FDA-Public Use
  Company Number: US-ABBOTT-12P-163-0996826-00

PATIENT
  Age: 27 Year
  Sex: Female

DRUGS (11)
  1. HUMIRA [Suspect]
     Indication: CROHN^S DISEASE
     Dates: start: 20120919, end: 20120919
  2. HUMIRA [Suspect]
     Dates: start: 20121003
  3. PROMETHAZINE [Concomitant]
     Indication: NAUSEA
     Dosage: 1 TO 2 TABLETS AS NEEDED
  4. PROMETHAZINE [Concomitant]
     Indication: VOMITING
  5. COMPAZINE [Concomitant]
     Indication: NAUSEA
     Dosage: AS NEEDED
  6. COMPAZINE [Concomitant]
     Indication: VOMITING
  7. BENTYL [Concomitant]
     Indication: ABDOMINAL PAIN UPPER
     Dosage: UP TO 4 PILLS DAILY AS NEEDED
  8. OMEPRAZOLE [Concomitant]
     Indication: GASTROOESOPHAGEAL REFLUX DISEASE
  9. NUVARING [Concomitant]
     Indication: ORAL CONTRACEPTION
     Dosage: MONTHLY
  10. TRAMADOL [Concomitant]
     Indication: PAIN
     Dosage: UP TO 3 PILLS DAILY AS NEEDED
  11. LOMOTIL [Concomitant]
     Indication: PRODUCT USED FOR UNKNOWN INDICATION

REACTIONS (3)
  - Rhinorrhoea [Not Recovered/Not Resolved]
  - Oropharyngeal pain [Not Recovered/Not Resolved]
  - Nasal congestion [Not Recovered/Not Resolved]
